FAERS Safety Report 18449887 (Version 8)
Quarter: 2023Q1

REPORT INFORMATION
  Report Type: Spontaneous
  Country: US (occurrence: US)
  Receive Date: 20201102
  Receipt Date: 20230125
  Transmission Date: 20230417
  Serious: Yes (Other)
  Sender: FDA-Public Use
  Company Number: US-HORIZON-2020HZN00618

PATIENT

DRUGS (12)
  1. TEPEZZA [Suspect]
     Active Substance: TEPROTUMUMAB-TRBW
     Indication: Endocrine ophthalmopathy
     Dosage: FIRST INFUSION
     Route: 042
     Dates: start: 202004
  2. TEPEZZA [Suspect]
     Active Substance: TEPROTUMUMAB-TRBW
     Dosage: SEVENTH INFUSION
     Route: 042
     Dates: start: 20200902, end: 20200902
  3. Carvidopa/Levodopa [Concomitant]
     Dosage: 25/100 MG FOR 3 DAY AND 50/200 MG AT NIGHT
  4. DULOXETINE [Concomitant]
     Active Substance: DULOXETINE
     Dosage: 40 MG, UNK
  5. PROZAC [Concomitant]
     Active Substance: FLUOXETINE HYDROCHLORIDE
     Dosage: 40 MG, ONCE DAILY
  6. ROPINIROLE [Concomitant]
     Active Substance: ROPINIROLE
  7. OXYBUTYNIN [Concomitant]
     Active Substance: OXYBUTYNIN
     Dosage: 5 MG, UNK
  8. OXYBUTYNIN [Concomitant]
     Active Substance: OXYBUTYNIN
     Dosage: 10 MG, BID
  9. RILUZOLE [Concomitant]
     Active Substance: RILUZOLE
     Dosage: 50 MG, UNK
  10. MONTELUKAST [Concomitant]
     Active Substance: MONTELUKAST SODIUM
  11. VITAMIN D3 [Concomitant]
     Active Substance: CHOLECALCIFEROL
     Dosage: 1000 IU, UNK
  12. GABAPENTIN [Concomitant]
     Active Substance: GABAPENTIN
     Dosage: 300 MG, BID

REACTIONS (23)
  - Dyspnoea [Not Recovered/Not Resolved]
  - Palpitations [Recovered/Resolved]
  - Hypertension [Recovered/Resolved]
  - Ear discomfort [Not Recovered/Not Resolved]
  - Hypoacusis [Not Recovered/Not Resolved]
  - Vulvovaginal dryness [Not Recovered/Not Resolved]
  - Amenorrhoea [Not Recovered/Not Resolved]
  - Menopausal symptoms [Unknown]
  - Restlessness [Recovered/Resolved]
  - Dry eye [Unknown]
  - Diplopia [Unknown]
  - Condition aggravated [Unknown]
  - Neuropathy peripheral [Recovered/Resolved]
  - Eye pain [Unknown]
  - Onychoclasis [Not Recovered/Not Resolved]
  - Dry mouth [Not Recovered/Not Resolved]
  - Alopecia [Recovered/Resolved]
  - Ageusia [Recovering/Resolving]
  - Fatigue [Recovering/Resolving]
  - Muscle spasms [Unknown]
  - Somnolence [Not Recovered/Not Resolved]
  - Pruritus [Not Recovered/Not Resolved]
  - Onycholysis [Not Recovered/Not Resolved]

NARRATIVE: CASE EVENT DATE: 20200101
